FAERS Safety Report 9023600 (Version 1)
Quarter: 2013Q1

REPORT INFORMATION
  Report Type: Spontaneous
  Country: GB (occurrence: GB)
  Receive Date: 20130121
  Receipt Date: 20130121
  Transmission Date: 20140127
  Serious: Yes (Other)
  Sender: FDA-Public Use
  Company Number: PHHY2013GB004918

PATIENT
  Age: 53 Year
  Sex: Female

DRUGS (11)
  1. OMEPRAZOLE [Suspect]
     Indication: PROPHYLAXIS AGAINST GASTROINTESTINAL ULCER
     Dosage: 20 MG, QD
     Route: 048
  2. ZOLMITRIPTAN [Concomitant]
  3. TIOTROPIUM [Concomitant]
  4. FEXOFENADINE [Concomitant]
  5. DOMPERIDONE [Concomitant]
  6. DICYCLOVERINE [Concomitant]
  7. CO-CODAMOL [Concomitant]
  8. PIZOTIFEN [Concomitant]
  9. NAPROXEN [Concomitant]
  10. FUROSEMIDE [Concomitant]
  11. PEPPERMINT OIL [Concomitant]

REACTIONS (1)
  - Benign breast neoplasm [Recovered/Resolved]
